FAERS Safety Report 13986377 (Version 2)
Quarter: 2017Q4

REPORT INFORMATION
  Report Type: Spontaneous
  Country: US (occurrence: US)
  Receive Date: 20170919
  Receipt Date: 20171020
  Transmission Date: 20180321
  Serious: Yes (Other)
  Sender: FDA-Public Use
  Company Number: PHEH2017US027838

PATIENT
  Age: 50 Year
  Sex: Female

DRUGS (3)
  1. DUREZOL [Concomitant]
     Active Substance: DIFLUPREDNATE
     Indication: PRODUCT USED FOR UNKNOWN INDICATION
     Dosage: UNK, Q3H
     Route: 065
  2. TIMOLOL. [Suspect]
     Active Substance: TIMOLOL
     Indication: POSTOPERATIVE CARE
     Dosage: 1 GTT, QD
     Route: 047
     Dates: start: 20170726
  3. ACULAR [Concomitant]
     Active Substance: KETOROLAC TROMETHAMINE
     Indication: PRODUCT USED FOR UNKNOWN INDICATION
     Dosage: UNK UNK, QID
     Route: 065

REACTIONS (8)
  - Anterior chamber cell [Recovering/Resolving]
  - Vitreous floaters [Recovering/Resolving]
  - Anterior chamber fibrin [Recovering/Resolving]
  - Corneal oedema [Recovering/Resolving]
  - Vitritis [Recovering/Resolving]
  - Vision blurred [Recovering/Resolving]
  - Glare [Recovering/Resolving]
  - Vitreal cells [Recovering/Resolving]

NARRATIVE: CASE EVENT DATE: 20170727
